FAERS Safety Report 22101596 (Version 2)
Quarter: 2023Q1

REPORT INFORMATION
  Report Type: Report from Study
  Country: US (occurrence: US)
  Receive Date: 20230316
  Receipt Date: 20230324
  Transmission Date: 20230417
  Serious: Yes (Hospitalization)
  Sender: FDA-Public Use
  Company Number: US-China IPSEN SC-2023-06525

PATIENT
  Age: 77 Year
  Sex: Female
  Weight: 61.7 kg

DRUGS (8)
  1. ONIVYDE [Suspect]
     Active Substance: IRINOTECAN HYDROCHLORIDE
     Indication: Gallbladder cancer metastatic
     Dosage: DAILY DOSE- 55 MG/M2
     Route: 042
     Dates: start: 20210330
  2. ONIVYDE [Suspect]
     Active Substance: IRINOTECAN HYDROCHLORIDE
     Indication: Metastases to lymph nodes
  3. NIVOLUMAB [Suspect]
     Active Substance: NIVOLUMAB
     Indication: Gallbladder cancer metastatic
     Dosage: DAILY DOSE- 240 MG/M2
     Route: 042
     Dates: start: 20210330
  4. NIVOLUMAB [Suspect]
     Active Substance: NIVOLUMAB
     Indication: Metastases to lymph nodes
  5. LEUCOVORIN [Suspect]
     Active Substance: LEUCOVORIN
     Indication: Gallbladder cancer metastatic
     Dosage: DAILY DOSE- 200 MG/M2
     Route: 042
     Dates: start: 20210330
  6. LEUCOVORIN [Suspect]
     Active Substance: LEUCOVORIN
     Indication: Gallbladder cancer metastatic
  7. FLUOROURACIL [Suspect]
     Active Substance: FLUOROURACIL
     Indication: Gallbladder cancer metastatic
     Dosage: DAILY DOSE- 2000 MG/M2
     Route: 042
     Dates: start: 20210330
  8. FLUOROURACIL [Suspect]
     Active Substance: FLUOROURACIL
     Indication: Metastases to lymph nodes

REACTIONS (10)
  - Colitis [Recovered/Resolved]
  - Hypotension [Recovered/Resolved]
  - Asthenia [Unknown]
  - Urinary tract infection [Unknown]
  - Eating disorder [Unknown]
  - Tachycardia [Unknown]
  - Hypotension [Unknown]
  - Blood creatinine increased [Unknown]
  - Blood urea abnormal [Unknown]
  - Leukocytosis [Unknown]

NARRATIVE: CASE EVENT DATE: 20230303
